FAERS Safety Report 13562489 (Version 1)
Quarter: 2017Q2

REPORT INFORMATION
  Report Type: Report from Study
  Country: None (occurrence: US)
  Receive Date: 20170519
  Receipt Date: 20170519
  Transmission Date: 20170830
  Serious: Yes (Hospitalization, Other)
  Sender: FDA-Public Use
  Company Number: US-ABBVIE-17K-163-1978113-00

PATIENT
  Age: 61 Year
  Sex: Female

DRUGS (1)
  1. HUMIRA [Suspect]
     Active Substance: ADALIMUMAB
     Indication: PSORIATIC ARTHROPATHY
     Route: 058
     Dates: start: 20161112, end: 2017

REACTIONS (9)
  - Incision site pain [Not Recovered/Not Resolved]
  - Viral upper respiratory tract infection [Recovered/Resolved]
  - Pulmonary embolism [Unknown]
  - Injection site reaction [Unknown]
  - Intervertebral disc protrusion [Recovering/Resolving]
  - Deep vein thrombosis [Unknown]
  - Oral herpes [Recovered/Resolved]
  - Upper respiratory tract infection [Recovered/Resolved]
  - Ovarian cyst [Unknown]

NARRATIVE: CASE EVENT DATE: 201703
